FAERS Safety Report 8218971-4 (Version None)
Quarter: 2012Q1

REPORT INFORMATION
  Report Type: 
  Country: None (occurrence: None)
  Receive Date: 20120319
  Receipt Date: 20120312
  Transmission Date: 20120608
  Serious: Yes (Other)
  Sender: FDA-Public Use
  Company Number: BR-MERCK-1203BRA00027

PATIENT
  Sex: Female
  Weight: 64 kg

DRUGS (2)
  1. FOSAMAX PLUS D [Suspect]
     Indication: OSTEOPOROSIS
     Route: 048
     Dates: start: 20070101, end: 20120310
  2. FOSAMAX PLUS D [Suspect]
     Indication: OSTEOARTHRITIS
     Route: 048
     Dates: start: 20070101, end: 20120310

REACTIONS (4)
  - THERAPY CESSATION [None]
  - DENTAL PROSTHESIS PLACEMENT [None]
  - ARTHRALGIA [None]
  - BLOOD PRESSURE FLUCTUATION [None]
